FAERS Safety Report 24929869 (Version 3)
Quarter: 2025Q3

REPORT INFORMATION
  Report Type: Spontaneous
  Country: US (occurrence: US)
  Receive Date: 20250205
  Receipt Date: 20250901
  Transmission Date: 20251020
  Serious: No
  Sender: SANOFI AVENTIS
  Company Number: US-SA-2025SA033893

PATIENT
  Age: 3 Year
  Sex: Female

DRUGS (3)
  1. DUPIXENT [Suspect]
     Active Substance: DUPILUMAB
     Indication: Dermatitis atopic
     Dosage: 300 MG, Q4W
     Route: 058
     Dates: start: 202408
  2. DUPIXENT [Suspect]
     Active Substance: DUPILUMAB
     Indication: Eczema
  3. VTAMA [Concomitant]
     Active Substance: TAPINAROF

REACTIONS (7)
  - Rhinorrhoea [Recovering/Resolving]
  - Cough [Recovering/Resolving]
  - Ocular hyperaemia [Recovering/Resolving]
  - Dermatitis atopic [Unknown]
  - Eczema [Recovering/Resolving]
  - Therapeutic response shortened [Recovering/Resolving]
  - Skin hypopigmentation [Unknown]

NARRATIVE: CASE EVENT DATE: 20250101
